FAERS Safety Report 13142987 (Version 1)
Quarter: 2017Q1

REPORT INFORMATION
  Report Type: Spontaneous
  Country: AU (occurrence: AU)
  Receive Date: 20170123
  Receipt Date: 20170123
  Transmission Date: 20170428
  Serious: Yes (Other)
  Sender: FDA-Public Use
  Company Number: AU-BEH-2017077408

PATIENT
  Age: 66 Year

DRUGS (1)
  1. HIZENTRA [Suspect]
     Active Substance: HUMAN IMMUNOGLOBULIN G
     Indication: COMBINED IMMUNODEFICIENCY
     Dosage: 6 G, QW
     Route: 065

REACTIONS (2)
  - Musculoskeletal stiffness [Unknown]
  - Infection [Unknown]

NARRATIVE: CASE EVENT DATE: 20170119
